FAERS Safety Report 8113342 (Version 11)
Quarter: 2013Q4

REPORT INFORMATION
  Report Type: Spontaneous
  Country: CA (occurrence: CA)
  Receive Date: 20110830
  Receipt Date: 20131009
  Transmission Date: 20140711
  Serious: Yes (Hospitalization, Other)
  Sender: FDA-Public Use
  Company Number: CA-GLAXOSMITHKLINE-A0930123A

PATIENT
  Age: 58 Year
  Sex: Female
  Weight: 56.8 kg

DRUGS (36)
  1. ADVAIR [Suspect]
     Indication: CHRONIC OBSTRUCTIVE PULMONARY DISEASE
     Dosage: 1PUFF TWICE PER DAY
     Route: 055
     Dates: start: 201011
  2. FLOVENT [Suspect]
     Indication: PRODUCT USED FOR UNKNOWN INDICATION
     Dosage: 2PUFF TWICE PER DAY
     Route: 065
     Dates: end: 201011
  3. ATROVENT [Suspect]
     Indication: PRODUCT USED FOR UNKNOWN INDICATION
     Route: 065
     Dates: start: 201110
  4. SALBUTAMOL [Concomitant]
     Indication: PRODUCT USED FOR UNKNOWN INDICATION
     Dosage: 4PUFF SEE DOSAGE TEXT
     Route: 055
  5. OXYCODONE [Concomitant]
     Dosage: 30MG THREE TIMES PER DAY
  6. OXYCODONE [Concomitant]
     Dosage: 10MG AS REQUIRED
  7. LYRICA [Concomitant]
     Dosage: 150MG TWICE PER DAY
  8. PANTOLOC [Concomitant]
     Dosage: 40MG TWICE PER DAY
  9. METOCLOPRAMIDE [Concomitant]
     Indication: GASTROINTESTINAL HYPOMOTILITY
     Dosage: 10MG TWICE PER DAY
  10. DIAZEPAM [Concomitant]
     Dosage: 10MG FOUR TIMES PER DAY
  11. ARIMIDEX [Concomitant]
     Indication: LIFE EXPECTANCY SHORTENED
     Dosage: 1MG PER DAY
  12. ALENDRONATE [Concomitant]
     Indication: OSTEOPOROSIS
     Dosage: 70MG WEEKLY
  13. GRAVOL [Concomitant]
     Dosage: 5MG FOUR TIMES PER DAY
  14. SENOKOT [Concomitant]
  15. BISACODYL [Concomitant]
  16. CALCIUM [Concomitant]
     Dosage: 500MG THREE TIMES PER DAY
  17. CALTRATE [Concomitant]
     Dosage: 400MG PER DAY
  18. VITAMIN D [Concomitant]
     Dosage: 100IU PER DAY
  19. ZINC [Concomitant]
     Dosage: 50MG PER DAY
  20. FOLIC ACID [Concomitant]
     Dosage: 1MG PER DAY
  21. DICLOFENAC [Concomitant]
     Indication: BONE PAIN
  22. VITAMIN B-COMPLEX [Concomitant]
  23. VITAMIN B1 [Concomitant]
     Dosage: 100MG PER DAY
  24. VITAMIN B6 [Concomitant]
     Dosage: 250MG PER DAY
  25. VITAMIN B12 [Concomitant]
     Dosage: 1200MG PER DAY
  26. GLUCOSAMINE [Concomitant]
     Dosage: 500MG PER DAY
  27. MAGNESIUM [Concomitant]
     Dosage: 250MG PER DAY
  28. OMEGA 3 [Concomitant]
     Dosage: 1000MG TWICE PER DAY
  29. ASA [Concomitant]
     Dosage: 85MG PER DAY
  30. HERCEPTIN [Concomitant]
     Indication: BREAST CANCER
  31. LISTERINE [Concomitant]
  32. MOUTH RINSE [Concomitant]
  33. TYLENOL 3 [Concomitant]
  34. SYMBICORT [Concomitant]
  35. OXYGEN [Concomitant]
  36. TYLENOL 3 [Concomitant]

REACTIONS (45)
  - Oral candidiasis [Not Recovered/Not Resolved]
  - Pneumonia [Unknown]
  - Respiratory tract infection [Unknown]
  - Postoperative wound complication [Recovered/Resolved]
  - Skin exfoliation [Recovered/Resolved]
  - Lower respiratory tract infection [Unknown]
  - Mass [Not Recovered/Not Resolved]
  - Cardiac failure congestive [Not Recovered/Not Resolved]
  - Balance disorder [Not Recovered/Not Resolved]
  - Walking aid user [Not Recovered/Not Resolved]
  - Drug withdrawal syndrome [Not Recovered/Not Resolved]
  - Asthenia [Not Recovered/Not Resolved]
  - Dyspnoea [Not Recovered/Not Resolved]
  - Poor quality sleep [Not Recovered/Not Resolved]
  - Ill-defined disorder [Unknown]
  - Gingival pain [Recovering/Resolving]
  - Stomatitis [Recovering/Resolving]
  - Oral pain [Recovering/Resolving]
  - Oropharyngeal plaque [Recovering/Resolving]
  - Influenza [Unknown]
  - Chapped lips [Unknown]
  - Dysphagia [Unknown]
  - Dysphonia [Not Recovered/Not Resolved]
  - Leukoplakia oral [Unknown]
  - Oral mucosal exfoliation [Unknown]
  - Convulsion [Recovered/Resolved]
  - Tooth deposit [Not Recovered/Not Resolved]
  - Productive cough [Not Recovered/Not Resolved]
  - Dental caries [Not Recovered/Not Resolved]
  - Hyperhidrosis [Recovered/Resolved]
  - Hot flush [Recovered/Resolved]
  - Nausea [Recovered/Resolved]
  - Vomiting [Recovered/Resolved]
  - Medication error [Unknown]
  - Malaise [Not Recovered/Not Resolved]
  - Chapped lips [Recovering/Resolving]
  - Candida infection [Recovered/Resolved]
  - Migraine [Not Recovered/Not Resolved]
  - Aphonia [Not Recovered/Not Resolved]
  - Laryngeal disorder [Not Recovered/Not Resolved]
  - Lung disorder [Not Recovered/Not Resolved]
  - Mastectomy [Unknown]
  - Dysphonia [Unknown]
  - Laryngitis [Unknown]
  - Increased upper airway secretion [Unknown]
